FAERS Safety Report 8445154-5 (Version None)
Quarter: 2012Q2

REPORT INFORMATION
  Report Type: 
  Country: None (occurrence: None)
  Receive Date: 20120618
  Receipt Date: 20120604
  Transmission Date: 20120825
  Serious: Yes (Other)
  Sender: FDA-Public Use
  Company Number: US-ROCHE-1076661

PATIENT
  Sex: Male

DRUGS (6)
  1. CEFTRIAXONE [Suspect]
     Indication: ARTHRITIS BACTERIAL
     Route: 042
  2. PREDNISONE [Concomitant]
     Indication: ARTHRITIS BACTERIAL
     Route: 065
  3. CEFTRIAXONE [Suspect]
     Indication: GOUT
  4. VANCOMYCIN [Concomitant]
     Indication: ARTHRITIS BACTERIAL
     Route: 065
  5. VANCOMYCIN [Concomitant]
     Indication: GOUT
  6. PREDNISONE [Concomitant]
     Indication: GOUT

REACTIONS (2)
  - AUTOIMMUNE HEPATITIS [None]
  - ACUTE HEPATIC FAILURE [None]
